FAERS Safety Report 5307172-5 (Version None)
Quarter: 2007Q2

REPORT INFORMATION
  Report Type: 
  Country: None (occurrence: None)
  Receive Date: 20070425
  Receipt Date: 20070223
  Transmission Date: 20071010
  Serious: No
  Sender: FDA-Public Use
  Company Number: US-AMGEN-US212501

PATIENT
  Sex: Female

DRUGS (4)
  1. VECTIBIX [Suspect]
     Indication: COLORECTAL CANCER
     Route: 042
     Dates: start: 20061130
  2. LITHIUM CARBONATE [Concomitant]
  3. MELATONIN [Concomitant]
  4. CALCIUM [Concomitant]

REACTIONS (4)
  - DRY SKIN [None]
  - FACIAL PAIN [None]
  - RASH MACULO-PAPULAR [None]
  - SKIN FISSURES [None]
